FAERS Safety Report 6703089-X (Version None)
Quarter: 2010Q2

REPORT INFORMATION
  Report Type: 
  Country: None (occurrence: None)
  Receive Date: 20100428
  Receipt Date: 20100419
  Transmission Date: 20101027
  Serious: Yes (Hospitalization)
  Sender: FDA-Public Use
  Company Number: 2010AL002039

PATIENT
  Age: 60 Year
  Sex: Male
  Weight: 80.6042 kg

DRUGS (18)
  1. OXYCODONE HCL [Suspect]
     Indication: PAIN
     Dosage: 40 MG;BID;PO
     Route: 048
     Dates: start: 20081024
  2. BEVACIZUMAB [Concomitant]
  3. CARBOPLATIN [Concomitant]
  4. PREDNISOLONE [Concomitant]
  5. PACLITAXEL [Concomitant]
  6. SALBUTAMOL [Concomitant]
  7. SODIUM CHLORIDE [Concomitant]
  8. MOVICOL [Concomitant]
  9. OXYCODONE HCL [Concomitant]
  10. DICLOFENAC [Concomitant]
  11. OMEPRAZOLE [Concomitant]
  12. MICROLAX [Concomitant]
  13. ZOPICLONE [Concomitant]
  14. VITAMIN B COMPLEX CAP [Concomitant]
  15. BENDROFLUAZIDE [Concomitant]
  16. ATROVENT [Concomitant]
  17. AMITRIPTYLINE HYDROCHLORIDE [Concomitant]
  18. ANUSOL [Concomitant]

REACTIONS (10)
  - ANAL FISSURE [None]
  - BLOOD PRESSURE MANAGEMENT [None]
  - CHEST DISCOMFORT [None]
  - DYSPHONIA [None]
  - DYSPNOEA [None]
  - NASOPHARYNGITIS [None]
  - NEUROPATHY PERIPHERAL [None]
  - NON-SMALL CELL LUNG CANCER [None]
  - PROCTALGIA [None]
  - STRIDOR [None]
